FAERS Safety Report 7979350-8 (Version None)
Quarter: 2011Q4

REPORT INFORMATION
  Report Type: 
  Country: None (occurrence: None)
  Receive Date: 20111214
  Receipt Date: 20111213
  Transmission Date: 20120403
  Serious: Yes (Hospitalization)
  Sender: FDA-Public Use
  Company Number: IT-SANOFI-AVENTIS-2011SA078643

PATIENT
  Age: 79 Year
  Sex: Male

DRUGS (10)
  1. RAMIPRIL [Suspect]
     Route: 048
     Dates: start: 20080101
  2. TIOPRONIN [Concomitant]
     Route: 055
  3. TRENTAL [Suspect]
     Route: 048
     Dates: start: 20080101
  4. PLAQUENIL [Suspect]
     Route: 048
     Dates: start: 20080101
  5. PREDNISONE TAB [Suspect]
     Route: 048
     Dates: start: 20080101
  6. OMEPRAZOLE [Suspect]
     Indication: PROPHYLAXIS AGAINST GASTROINTESTINAL ULCER
     Route: 048
     Dates: start: 20080101
  7. LASIX [Suspect]
     Route: 048
     Dates: start: 20080101
  8. TRAMADOL HCL [Suspect]
     Route: 048
     Dates: start: 20080101, end: 20110906
  9. ACETYLSALICYLIC ACID SRT [Concomitant]
     Indication: CARDIOVASCULAR EVENT PROPHYLAXIS
     Route: 048
  10. LAMIVUDINE [Suspect]
     Route: 048
     Dates: start: 20080101

REACTIONS (7)
  - INAPPROPRIATE ANTIDIURETIC HORMONE SECRETION [None]
  - HYPOTENSION [None]
  - PAIN [None]
  - DIZZINESS [None]
  - BRADYPHRENIA [None]
  - HYPONATRAEMIA [None]
  - ASTHENIA [None]
